FAERS Safety Report 13997075 (Version 1)
Quarter: 2017Q3

REPORT INFORMATION
  Report Type: Spontaneous
  Country: US (occurrence: US)
  Receive Date: 20170921
  Receipt Date: 20170921
  Transmission Date: 20171128
  Serious: No
  Sender: FDA-Public Use
  Company Number: US-RISING PHARMACEUTICALS, INC.-2017RIS00017

PATIENT
  Age: 66 Year
  Sex: Female
  Weight: 70.3 kg

DRUGS (7)
  1. BEET. [Concomitant]
     Active Substance: BEET
  2. CARROT. [Concomitant]
     Active Substance: CARROT
  3. VITAMIN D [Concomitant]
     Active Substance: CHOLECALCIFEROL
  4. PROCTOZONE-HC [Suspect]
     Active Substance: HYDROCORTISONE
     Indication: HAEMORRHOIDS
     Dosage: UNK UNK, USED ONLY TWICE
     Route: 061
     Dates: start: 20170125, end: 20170125
  5. OMEGA 3 [Concomitant]
     Active Substance: OMEGA-3 FATTY ACIDS
  6. BARLEY. [Concomitant]
     Active Substance: BARLEY
  7. PROANCYNOL [Concomitant]

REACTIONS (4)
  - Chest discomfort [Recovering/Resolving]
  - Malaise [Unknown]
  - Blood pressure decreased [Recovering/Resolving]
  - Drug ineffective [Unknown]

NARRATIVE: CASE EVENT DATE: 20170126
